FAERS Safety Report 7953979-5 (Version None)
Quarter: 2011Q4

REPORT INFORMATION
  Report Type: 
  Country: None (occurrence: None)
  Receive Date: 20111202
  Receipt Date: 20111202
  Transmission Date: 20120403
  Serious: Yes (Other)
  Sender: FDA-Public Use
  Company Number: None

PATIENT
  Sex: Male
  Weight: 73.481 kg

DRUGS (2)
  1. PREDNISONE TAB [Suspect]
     Indication: INFLUENZA LIKE ILLNESS
     Dosage: STEP DOWN FROM 6 1ST DAY TO 1
     Route: 048
     Dates: start: 20111030, end: 20111106
  2. PREDNISONE TAB [Suspect]
     Indication: RASH
     Dosage: STEP DOWN FROM 6 1ST DAY TO 1
     Route: 048
     Dates: start: 20111030, end: 20111106

REACTIONS (1)
  - VISUAL IMPAIRMENT [None]
